FAERS Safety Report 25526592 (Version 1)
Quarter: 2025Q3

REPORT INFORMATION
  Report Type: Spontaneous
  Country: JP (occurrence: JP)
  Receive Date: 20250707
  Receipt Date: 20250707
  Transmission Date: 20251021
  Serious: Yes (Hospitalization, Other)
  Sender: DAITO PHARMACEUTICALS
  Company Number: JP-Daito Pharmaceutical Co., Ltd.-2180069

PATIENT
  Age: 7 Decade
  Sex: Male

DRUGS (1)
  1. METHOTREXATE SODIUM [Suspect]
     Active Substance: METHOTREXATE SODIUM
     Indication: Rheumatoid arthritis

REACTIONS (2)
  - Angioimmunoblastic T-cell lymphoma [Recovering/Resolving]
  - Acute kidney injury [Recovering/Resolving]
